FAERS Safety Report 10197729 (Version 1)
Quarter: 2014Q2

REPORT INFORMATION
  Report Type: Spontaneous
  Country: US (occurrence: US)
  Receive Date: 20140527
  Receipt Date: 20140527
  Transmission Date: 20141212
  Serious: Yes (Hospitalization, Other)
  Sender: FDA-Public Use
  Company Number: US-AMGEN INC.-USASP2014037591

PATIENT
  Age: 51 Year
  Sex: Female

DRUGS (1)
  1. NPLATE [Suspect]
     Indication: IMMUNE THROMBOCYTOPENIC PURPURA
     Dosage: UNK UNK, QWK
     Route: 065
     Dates: start: 2012

REACTIONS (17)
  - Asthenia [Unknown]
  - Dehydration [Unknown]
  - Malnutrition [Unknown]
  - Hepatic cirrhosis [Unknown]
  - Pancreatitis chronic [Unknown]
  - Functional gastrointestinal disorder [Unknown]
  - Oesophageal disorder [Unknown]
  - Diabetes mellitus [Unknown]
  - White blood cell count decreased [Unknown]
  - Fatigue [Recovered/Resolved]
  - Nausea [Recovered/Resolved]
  - Vomiting [Unknown]
  - Malaise [Unknown]
  - Irritable bowel syndrome [Unknown]
  - Gastritis [Unknown]
  - Anaemia [Recovered/Resolved]
  - Diarrhoea [Unknown]
